FAERS Safety Report 12084949 (Version 1)
Quarter: 2016Q1

REPORT INFORMATION
  Report Type: Spontaneous
  Country: US (occurrence: US)
  Receive Date: 20160217
  Receipt Date: 20160217
  Transmission Date: 20160526
  Serious: No
  Sender: FDA-Public Use
  Company Number: US-PERRIGO-15US013657

PATIENT
  Sex: Female

DRUGS (3)
  1. TRETINOIN. [Suspect]
     Active Substance: TRETINOIN
     Indication: SOLAR LENTIGO
     Dosage: UNK, UNK
     Route: 061
  2. TRETINOIN. [Suspect]
     Active Substance: TRETINOIN
     Dosage: UNK, UNK
     Route: 061
  3. TRETINOIN. [Suspect]
     Active Substance: TRETINOIN
     Indication: ACNE
     Dosage: UNK, UNK
     Route: 061
     Dates: start: 1989

REACTIONS (4)
  - Application site exfoliation [Recovered/Resolved]
  - Application site erythema [Recovered/Resolved]
  - Product physical issue [Unknown]
  - Application site papules [Unknown]
